FAERS Safety Report 17610773 (Version 1)
Quarter: 2020Q1

REPORT INFORMATION
  Report Type: Spontaneous
  Country: US (occurrence: US)
  Receive Date: 20200330
  Receipt Date: 20200330
  Transmission Date: 20200409
  Serious: Yes (Hospitalization)
  Sender: FDA-Public Use
  Company Number: None

PATIENT
  Age: 73 Year
  Sex: Male
  Weight: 73 kg

DRUGS (1)
  1. ACETAMINOPHEN/HYDROCODONE (HYDROCODONE 5MG/ACETAMINOPHEN 325MG TAB) [Suspect]
     Active Substance: ACETAMINOPHEN\HYDROCODONE
     Dosage: ?          OTHER DOSE:5/325 MG;?
     Route: 048
     Dates: start: 20200107, end: 20200111

REACTIONS (2)
  - Mental status changes [None]
  - Sedation [None]

NARRATIVE: CASE EVENT DATE: 20200111
